FAERS Safety Report 6185145-0 (Version None)
Quarter: 2009Q2

REPORT INFORMATION
  Report Type: 
  Country: None (occurrence: None)
  Receive Date: 20090511
  Receipt Date: 20090511
  Transmission Date: 20091009
  Serious: Yes (Other)
  Sender: FDA-Public Use
  Company Number: DE-PFIZER INC-2009167767

PATIENT
  Age: 46 Year

DRUGS (3)
  1. NORVASC [Suspect]
     Indication: HYPERTENSION
     Dosage: 5 UNK, 1X/DAY
     Route: 048
     Dates: start: 20081001, end: 20090204
  2. ATACAND [Concomitant]
     Indication: HYPERTENSION
     Dosage: 16 UNK, 1X/DAY
     Route: 048
     Dates: start: 20080901, end: 20090301
  3. NEXIUM [Concomitant]
     Indication: REFLUX OESOPHAGITIS
     Dosage: UNK

REACTIONS (4)
  - MUSCLE SPASMS [None]
  - MUSCLE TWITCHING [None]
  - NEUROPATHY PERIPHERAL [None]
  - SENSORY DISTURBANCE [None]
